FAERS Safety Report 12731863 (Version 1)
Quarter: 2016Q3

REPORT INFORMATION
  Report Type: Spontaneous
  Country: US (occurrence: US)
  Receive Date: 20160909
  Receipt Date: 20160909
  Transmission Date: 20161109
  Serious: Yes (Disabling)
  Sender: FDA-Public Use
  Company Number: None

PATIENT
  Age: 50 Year
  Sex: Male
  Weight: 123 kg

DRUGS (2)
  1. ASPIRIN EC [Concomitant]
     Active Substance: ASPIRIN
  2. XARELTO [Suspect]
     Active Substance: RIVAROXABAN
     Indication: ATRIAL FIBRILLATION
     Route: 048
     Dates: start: 20160823, end: 20160825

REACTIONS (2)
  - Intra-abdominal haemorrhage [None]
  - Renal failure [None]

NARRATIVE: CASE EVENT DATE: 20160906
